FAERS Safety Report 16661695 (Version 2)
Quarter: 2019Q3

REPORT INFORMATION
  Report Type: Spontaneous
  Country: CA (occurrence: CA)
  Receive Date: 20190802
  Receipt Date: 20190805
  Transmission Date: 20191004
  Serious: Yes (Other)
  Sender: FDA-Public Use
  Company Number: CA-PFIZER INC-2019319662

PATIENT
  Age: 42 Year
  Sex: Male
  Weight: 79 kg

DRUGS (3)
  1. IBUPROFEN. [Suspect]
     Active Substance: IBUPROFEN
     Indication: PAIN
     Dosage: UNK UNK, AS NEEDED
     Route: 048
  2. IBUPROFEN. [Suspect]
     Active Substance: IBUPROFEN
     Dosage: 600 MG, 3X/DAY FOR TWO WEEKS
  3. MEZAVANT [Concomitant]
     Active Substance: MESALAMINE
     Dosage: 2.4 G, 2X/DAY
     Route: 048

REACTIONS (5)
  - Overdose [Unknown]
  - Uveitis [Unknown]
  - Crohn^s disease [Unknown]
  - Therapeutic product effect incomplete [Unknown]
  - C-reactive protein increased [Unknown]
